FAERS Safety Report 6661956-X (Version None)
Quarter: 2010Q1

REPORT INFORMATION
  Report Type: 
  Country: None (occurrence: None)
  Receive Date: 20100331
  Receipt Date: 20091021
  Transmission Date: 20100710
  Serious: No
  Sender: FDA-Public Use
  Company Number: US-BRISTOL-MYERS SQUIBB COMPANY-14826200

PATIENT

DRUGS (6)
  1. ERBITUX [Suspect]
  2. DECADRON [Concomitant]
     Indication: PREMEDICATION
  3. BENADRYL [Concomitant]
     Indication: PREMEDICATION
  4. ALBUTEROL SULATE [Concomitant]
     Indication: PREMEDICATION
  5. H1 ANTAGONIST [Concomitant]
     Indication: PREMEDICATION
  6. H2 ANTAGONIST [Concomitant]
     Indication: PREMEDICATION

REACTIONS (1)
  - HYPERSENSITIVITY [None]
